FAERS Safety Report 4285668-5 (Version None)
Quarter: 2004Q1

REPORT INFORMATION
  Report Type: 
  Country: None (occurrence: None)
  Receive Date: 20040204
  Receipt Date: 20040204
  Transmission Date: 20041129
  Serious: No
  Sender: FDA-Public Use
  Company Number: None

PATIENT
  Sex: Male

DRUGS (1)
  1. PROTONIX [Suspect]
     Indication: GASTROINTESTINAL DISORDER
     Dosage: 40 MG QD ORAL
     Route: 048
     Dates: start: 20030827, end: 20030922

REACTIONS (1)
  - DIARRHOEA [None]
